FAERS Safety Report 23133484 (Version 3)
Quarter: 2023Q4

REPORT INFORMATION
  Report Type: Spontaneous
  Country: AR (occurrence: AR)
  Receive Date: 20231101
  Receipt Date: 20231214
  Transmission Date: 20240110
  Serious: No
  Sender: FDA-Public Use
  Company Number: AR-PFIZER INC-PV202300168318

PATIENT
  Age: 7 Year
  Sex: Female

DRUGS (1)
  1. GENOTROPIN [Suspect]
     Active Substance: SOMATROPIN
     Indication: Short stature
     Dosage: 0.1 TO 0.5 MG (7 TIMES PER WEEK)
     Dates: start: 20190810

REACTIONS (4)
  - Poor quality device used [Unknown]
  - Device failure [Unknown]
  - Device information output issue [Unknown]
  - Device leakage [Unknown]
